FAERS Safety Report 5944709-7 (Version None)
Quarter: 2008Q4

REPORT INFORMATION
  Report Type: 
  Country: None (occurrence: None)
  Receive Date: 20081107
  Receipt Date: 20081103
  Transmission Date: 20090506
  Serious: Yes (Life-Threatening)
  Sender: FDA-Public Use
  Company Number: PL-BAYER-200828895GPV

PATIENT
  Age: 34 Year
  Sex: Female

DRUGS (1)
  1. ALEVE [Suspect]
     Indication: NASOPHARYNGITIS
     Route: 048
     Dates: start: 20080917, end: 20080917

REACTIONS (2)
  - ALTERED STATE OF CONSCIOUSNESS [None]
  - VERTIGO [None]
